FAERS Safety Report 24454341 (Version 2)
Quarter: 2024Q4

REPORT INFORMATION
  Report Type: Spontaneous
  Country: CN (occurrence: CN)
  Receive Date: 20241017
  Receipt Date: 20241018
  Transmission Date: 20250114
  Serious: No
  Sender: ROCHE
  Company Number: CN-ROCHE-3459014

PATIENT
  Age: 40 Year
  Sex: Female

DRUGS (9)
  1. MABTHERA [Suspect]
     Active Substance: RITUXIMAB
     Indication: Lymphoma
     Dosage: FOR 4 CYCLES OF R-CHOP
     Route: 065
  2. POLIVY [Suspect]
     Active Substance: POLATUZUMAB VEDOTIN-PIIQ
     Indication: Lymphoma
     Dosage: POLA-BR
     Route: 042
  3. POLIVY [Suspect]
     Active Substance: POLATUZUMAB VEDOTIN-PIIQ
     Dosage: POLA-BR
     Route: 042
  4. CYCLOPHOSPHAMIDE [Concomitant]
     Active Substance: CYCLOPHOSPHAMIDE
     Indication: Lymphoma
     Dosage: FOR 4 CYCLES OF R-CHOP
  5. DOXORUBICIN [Concomitant]
     Active Substance: DOXORUBICIN
     Indication: Lymphoma
     Dosage: FOR 4 CYCLES OF R-CHOP
  6. VINCRISTINE [Concomitant]
     Active Substance: VINCRISTINE
     Indication: Lymphoma
     Dosage: FOR 4 CYCLES OF R-CHOP
     Route: 065
  7. PREDNISONE [Concomitant]
     Active Substance: PREDNISONE
     Indication: Lymphoma
     Dosage: FOR 4 CYCLES OF R-CHOP
  8. RITUXIMAB [Concomitant]
     Active Substance: RITUXIMAB
     Indication: Lymphoma
     Dosage: POLA-BR
     Route: 065
  9. BENDAMUSTINE [Concomitant]
     Active Substance: BENDAMUSTINE
     Indication: Lymphoma
     Dosage: POLA-BR

REACTIONS (3)
  - Disease progression [Unknown]
  - Headache [Recovered/Resolved]
  - Rash [Not Recovered/Not Resolved]
